FAERS Safety Report 7315921-X (Version None)
Quarter: 2011Q1

REPORT INFORMATION
  Report Type: 
  Country: None (occurrence: None)
  Receive Date: 20110217
  Receipt Date: 20110217
  Transmission Date: 20110831
  Serious: Yes (Hospitalization)
  Sender: FDA-Public Use
  Company Number: None

PATIENT
  Age: 83 Year
  Sex: Male
  Weight: 67 kg

DRUGS (3)
  1. FUROSEMIDE [Suspect]
     Indication: PULMONARY EMBOLISM
     Dosage: 20 MG BID IV
     Route: 042
     Dates: start: 20110202, end: 20110209
  2. FUROSEMIDE [Suspect]
     Indication: CARDIAC FAILURE CONGESTIVE
     Dosage: 20 MG BID IV
     Route: 042
     Dates: start: 20110202, end: 20110209
  3. SULINDAC [Suspect]
     Indication: OSTEOARTHRITIS
     Dosage: 150 MG BID PO
     Route: 048
     Dates: start: 20100914, end: 20110130

REACTIONS (6)
  - THROMBOCYTOPENIA [None]
  - LEUKOPENIA [None]
  - AGRANULOCYTOSIS [None]
  - CONFUSIONAL STATE [None]
  - RASH [None]
  - ANAEMIA [None]
